FAERS Safety Report 9409581 (Version 6)
Quarter: 2014Q1

REPORT INFORMATION
  Report Type: Spontaneous
  Country: DE (occurrence: DE)
  Receive Date: 20130719
  Receipt Date: 20140312
  Transmission Date: 20141002
  Serious: Yes (Hospitalization)
  Sender: FDA-Public Use
  Company Number: DE-VERTEX PHARMACEUTICALS INC-2013-007901

PATIENT
  Age: 53 Year
  Sex: Female

DRUGS (6)
  1. INCIVO [Suspect]
     Indication: HEPATITIS C
     Dosage: DOSE: 2250 UNIT NOT REPORTED (3 IN 1 D)
     Route: 048
     Dates: start: 20121121, end: 20130213
  2. PEGASYS [Suspect]
     Indication: HEPATITIS C
     Dosage: DOSAGE FORM: INJECTION, DOSE: 90 UNIT NOT REPORTED
     Route: 058
     Dates: start: 20121121, end: 20130515
  3. COPEGUS [Suspect]
     Indication: HEPATITIS C
     Dosage: DOSAGE FORM: UNKNOWN, DOSE: 200 UNIT NOT REPORTED
     Route: 048
     Dates: start: 20121121, end: 20130515
  4. HEPARIN [Suspect]
     Indication: PRODUCT USED FOR UNKNOWN INDICATION
     Dosage: UNK
     Route: 065
  5. HEPARIN [Suspect]
     Dosage: DOSAGE FORM: UNSPECIFIED
  6. HEPARIN [Suspect]
     Dosage: DOSAGE FORM: UNSPECIFIED

REACTIONS (3)
  - Retroperitoneal haemorrhage [Recovered/Resolved]
  - Sepsis [Recovered/Resolved]
  - Renal failure [Not Recovered/Not Resolved]
